FAERS Safety Report 4697925-9 (Version None)
Quarter: 2005Q2

REPORT INFORMATION
  Report Type: 
  Country: None (occurrence: None)
  Receive Date: 20050623
  Receipt Date: 20050510
  Transmission Date: 20051028
  Serious: Yes (Hospitalization, Disabling)
  Sender: FDA-Public Use
  Company Number: JP-BOEHRINGER INGELHEIM PHARMACEUTICALS, INC.-2005-BP-07811NB

PATIENT
  Sex: Male
  Weight: 64 kg

DRUGS (6)
  1. SPIRIVA [Suspect]
     Indication: EMPHYSEMA
     Route: 055
     Dates: start: 20050106
  2. ALLOZYM [Suspect]
     Indication: HYPERURICAEMIA
     Route: 048
     Dates: start: 20041202, end: 20041231
  3. TEOFURMATE L (THEOPHYLLINE) [Concomitant]
     Indication: EMPHYSEMA
     Route: 048
     Dates: start: 20030515
  4. HOKUNALIN [Concomitant]
     Indication: EMPHYSEMA
     Route: 062
     Dates: start: 20030515
  5. ADALAT-CR (NEFEDIPINE) [Concomitant]
     Indication: HYPERTENSION
     Route: 048
     Dates: start: 20030515
  6. CODEINE PHOSPHATE [Concomitant]
     Indication: COUGH
     Route: 048
     Dates: start: 20050207

REACTIONS (2)
  - INTERSTITIAL LUNG DISEASE [None]
  - RASH [None]
